FAERS Safety Report 17980549 (Version 8)
Quarter: 2021Q3

REPORT INFORMATION
  Report Type: Spontaneous
  Country: DE (occurrence: DE)
  Receive Date: 20200704
  Receipt Date: 20210813
  Transmission Date: 20211014
  Serious: Yes (Other)
  Sender: FDA-Public Use
  Company Number: DE-AUROBINDO-AUR-APL-2020-031415

PATIENT
  Sex: Female

DRUGS (20)
  1. RAMIPRIL. [Suspect]
     Active Substance: RAMIPRIL
     Indication: PRODUCT USED FOR UNKNOWN INDICATION
     Dosage: 5 MILLIGRAM, ONCE A DAY
     Route: 065
  2. OCREVUS [Suspect]
     Active Substance: OCRELIZUMAB
     Dosage: 600 MILLIGRAM
     Route: 042
     Dates: start: 20190122
  3. OCREVUS [Suspect]
     Active Substance: OCRELIZUMAB
     Dosage: 600 MILLIGRAM (5TH INFUSION )
     Route: 042
     Dates: start: 20190724
  4. OCREVUS [Suspect]
     Active Substance: OCRELIZUMAB
     Dosage: 600 MILLIGRAM
     Route: 042
     Dates: start: 20201215
  5. DEKRISTOL [Concomitant]
     Active Substance: CHOLECALCIFEROL
     Indication: PRODUCT USED FOR UNKNOWN INDICATION
     Dosage: 2000 INTERNATIONAL UNIT, EVERY WEEK
     Route: 065
  6. SERTRALINE [Concomitant]
     Active Substance: SERTRALINE HYDROCHLORIDE
     Indication: PRODUCT USED FOR UNKNOWN INDICATION
     Dosage: 50 MILLIGRAM, ONCE A DAY
     Route: 065
     Dates: start: 20200619
  7. CORTISONE [Suspect]
     Active Substance: CORTISONE
     Dosage: UNK, AS REQUIRED IN LEFT EYE
     Route: 065
  8. CORTISONE [Suspect]
     Active Substance: CORTISONE
     Indication: MACULAR OEDEMA
     Dosage: UNK
     Route: 065
  9. OCREVUS [Suspect]
     Active Substance: OCRELIZUMAB
     Indication: PRIMARY PROGRESSIVE MULTIPLE SCLEROSIS
     Dosage: 600 MILLIGRAM
     Route: 042
     Dates: start: 20171201
  10. RAMIPRIL. [Suspect]
     Active Substance: RAMIPRIL
     Dosage: 7.5 MILLIGRAM, ONCE A DAY
     Route: 065
  11. OCREVUS [Suspect]
     Active Substance: OCRELIZUMAB
     Dosage: 600 MILLIGRAM
     Route: 042
     Dates: start: 20200122
  12. OCREVUS [Suspect]
     Active Substance: OCRELIZUMAB
     Dosage: 600 MILLIGRAM
     Route: 042
     Dates: start: 20200722
  13. LEVOTHYROXINE. [Concomitant]
     Active Substance: LEVOTHYROXINE
     Indication: PRODUCT USED FOR UNKNOWN INDICATION
     Dosage: 75 MICROGRAM, ONCE A DAY
     Route: 065
  14. LEVOTHYROXINE. [Concomitant]
     Active Substance: LEVOTHYROXINE
     Dosage: 75 MICROGRAM
     Route: 065
  15. RAMIPRIL. [Suspect]
     Active Substance: RAMIPRIL
     Dosage: 10 MILLIGRAM, ONCE A DAY
     Route: 065
  16. OCREVUS [Suspect]
     Active Substance: OCRELIZUMAB
     Dosage: 600 MILLIGRAM
     Route: 042
     Dates: start: 20210526
  17. COMIRNATY [Concomitant]
     Active Substance: TOZINAMERAN
     Dosage: SECOND DOSE
     Route: 065
     Dates: start: 20210428
  18. DEXA EDO [Suspect]
     Active Substance: DEXAMETHASONE SODIUM PHOSPHATE
     Indication: PRODUCT USED FOR UNKNOWN INDICATION
     Dosage: UNK, IN THE LEFT EYE (1 HOUR)
     Route: 065
  19. COMIRNATY [Concomitant]
     Active Substance: TOZINAMERAN
     Indication: PRODUCT USED FOR UNKNOWN INDICATION
     Dosage: FIRST DOSE
     Route: 065
     Dates: start: 20210407
  20. OCREVUS [Suspect]
     Active Substance: OCRELIZUMAB
     Indication: PRIMARY PROGRESSIVE MULTIPLE SCLEROSIS
     Dosage: 600 MILLIGRAM
     Route: 042
     Dates: start: 20190122

REACTIONS (71)
  - Muscle disorder [Recovering/Resolving]
  - Muscle spasticity [Recovered/Resolved]
  - Chills [Not Recovered/Not Resolved]
  - Blood potassium decreased [Recovered/Resolved]
  - Agitation [Recovering/Resolving]
  - Hypertension [Recovered/Resolved]
  - Macular oedema [Not Recovered/Not Resolved]
  - Alopecia [Recovered/Resolved]
  - Hair texture abnormal [Recovered/Resolved]
  - Crying [Recovered/Resolved]
  - Iliotibial band syndrome [Recovering/Resolving]
  - Ocular hyperaemia [Not Recovered/Not Resolved]
  - Hypoaesthesia [Not Recovered/Not Resolved]
  - Abnormal sensation in eye [Not Recovered/Not Resolved]
  - Stress fracture [Recovered/Resolved]
  - Lip erythema [Not Recovered/Not Resolved]
  - Taste disorder [Not Recovered/Not Resolved]
  - Blood cholesterol increased [Recovered/Resolved]
  - Pain [Recovering/Resolving]
  - Gait disturbance [Not Recovered/Not Resolved]
  - Hypercholesterolaemia [Unknown]
  - Listless [Recovered/Resolved]
  - Initial insomnia [Recovering/Resolving]
  - Magnetic resonance imaging head abnormal [Not Recovered/Not Resolved]
  - Arthralgia [Recovered/Resolved]
  - Onychoclasis [Recovered/Resolved]
  - Headache [Recovered/Resolved]
  - Erythema [Recovered/Resolved]
  - Fall [Unknown]
  - Cartilage injury [Recovered/Resolved]
  - Central nervous system lesion [Not Recovered/Not Resolved]
  - Residual urine volume increased [Not Recovered/Not Resolved]
  - Decreased appetite [Recovered/Resolved]
  - Paraesthesia [Recovered/Resolved]
  - Flatulence [Recovered/Resolved]
  - Urinary tract infection [Recovered/Resolved]
  - Micturition urgency [Recovered/Resolved]
  - Somnolence [Recovered/Resolved]
  - Vestibular disorder [Not Recovered/Not Resolved]
  - Malaise [Unknown]
  - Ligament sprain [Recovered/Resolved]
  - Drug intolerance [Recovered/Resolved]
  - Therapeutic product effect decreased [Unknown]
  - Iritis [Recovering/Resolving]
  - Hemiparesis [Not Recovered/Not Resolved]
  - Raynaud^s phenomenon [Not Recovered/Not Resolved]
  - Dry skin [Not Recovered/Not Resolved]
  - Constipation [Recovered/Resolved]
  - Restlessness [Recovered/Resolved]
  - Hyperacusis [Not Recovered/Not Resolved]
  - Swelling [Not Recovered/Not Resolved]
  - Cold sweat [Recovered/Resolved]
  - Nausea [Recovering/Resolving]
  - Drug ineffective [Unknown]
  - Fatigue [Recovered/Resolved]
  - Metabolic disorder [Unknown]
  - Balance disorder [Not Recovered/Not Resolved]
  - Arrhythmia [Recovered/Resolved]
  - Visual impairment [Not Recovered/Not Resolved]
  - Muscular weakness [Recovered/Resolved]
  - Memory impairment [Not Recovered/Not Resolved]
  - Mobility decreased [Recovered/Resolved]
  - Depression [Recovered/Resolved]
  - Hyperaesthesia [Recovered/Resolved]
  - Scleral hyperaemia [Not Recovered/Not Resolved]
  - Photosensitivity reaction [Recovering/Resolving]
  - Bladder dysfunction [Not Recovered/Not Resolved]
  - Asthenia [Recovered/Resolved]
  - Photophobia [Recovering/Resolving]
  - Ovarian cyst [Recovered/Resolved]
  - Trichorrhexis [Not Recovered/Not Resolved]

NARRATIVE: CASE EVENT DATE: 20171201
